FAERS Safety Report 6883677-0 (Version None)
Quarter: 2010Q3

REPORT INFORMATION
  Report Type: 
  Country: None (occurrence: None)
  Receive Date: 20100729
  Receipt Date: 20100720
  Transmission Date: 20110219
  Serious: Yes (Hospitalization)
  Sender: FDA-Public Use
  Company Number: A0867098A

PATIENT
  Age: 56 Year
  Sex: Female
  Weight: 109.1 kg

DRUGS (8)
  1. AVANDIA [Suspect]
     Dosage: 4MG PER DAY
     Dates: start: 20060101, end: 20071201
  2. AVANDARYL [Suspect]
     Dosage: 1TAB PER DAY
     Dates: start: 20070101, end: 20090701
  3. LISINOPRIL [Concomitant]
  4. ZOCOR [Concomitant]
  5. METFORMIN HCL [Concomitant]
  6. BYETTA [Concomitant]
  7. INSULIN [Concomitant]
  8. LASIX [Concomitant]

REACTIONS (1)
  - MYOCARDIAL INFARCTION [None]
